FAERS Safety Report 17767567 (Version 1)
Quarter: 2020Q2

REPORT INFORMATION
  Report Type: Spontaneous
  Country: IN (occurrence: IN)
  Receive Date: 20200511
  Receipt Date: 20200511
  Transmission Date: 20200714
  Serious: Yes (Hospitalization)
  Sender: FDA-Public Use
  Company Number: IN-MYLANLABS-2020M1046542

PATIENT
  Age: 21 Year
  Sex: Male

DRUGS (1)
  1. DICYCLOVERINE [Suspect]
     Active Substance: DICYCLOMINE HYDROCHLORIDE
     Indication: PRODUCT USED FOR UNKNOWN INDICATION
     Dosage: 5-6 TIMES A DAY
     Route: 048

REACTIONS (6)
  - Mydriasis [Unknown]
  - Drug withdrawal syndrome [Unknown]
  - Vision blurred [Unknown]
  - Hyperhidrosis [Unknown]
  - Drug dependence [Unknown]
  - Tachycardia [Unknown]
